FAERS Safety Report 16305293 (Version 1)
Quarter: 2019Q2

REPORT INFORMATION
  Report Type: Spontaneous
  Country: FR (occurrence: FR)
  Receive Date: 20190513
  Receipt Date: 20190513
  Transmission Date: 20190711
  Serious: Yes (Hospitalization)
  Sender: FDA-Public Use
  Company Number: FR-MYLANLABS-2019M1044161

PATIENT
  Age: 91 Year
  Sex: Female
  Weight: 65 kg

DRUGS (3)
  1. ZAMUDOL LP 50 MG, G?LULE ? LIB?RATION PROLONG?E [Suspect]
     Active Substance: TRAMADOL HYDROCHLORIDE
     Indication: SCIATICA
     Dosage: 2 DOSAGE FORM, QD
     Route: 048
     Dates: start: 20181113, end: 20181114
  2. IXPRIM [Suspect]
     Active Substance: ACETAMINOPHEN\TRAMADOL HYDROCHLORIDE
     Dosage: 3 DOSAGE FORM, QD
     Route: 048
     Dates: start: 20181113, end: 20181114
  3. IXPRIM [Suspect]
     Active Substance: ACETAMINOPHEN\TRAMADOL HYDROCHLORIDE
     Indication: SCIATICA
     Dosage: 2 DOSAGE FORM, QD
     Route: 048
     Dates: start: 20181113, end: 20181114

REACTIONS (3)
  - Hallucination, auditory [Recovered/Resolved]
  - Fall [Recovered/Resolved]
  - Hallucination, visual [Recovered/Resolved]

NARRATIVE: CASE EVENT DATE: 20181113
